FAERS Safety Report 8535162-8 (Version None)
Quarter: 2012Q3

REPORT INFORMATION
  Report Type: 
  Country: None (occurrence: None)
  Receive Date: 20120724
  Receipt Date: 20120713
  Transmission Date: 20120928
  Serious: Yes (Death, Hospitalization, Other)
  Sender: FDA-Public Use
  Company Number: US-009507513-2012SP015285

PATIENT

DRUGS (1)
  1. NUVARING [Suspect]
     Indication: CONTRACEPTION
     Dosage: UNK
     Route: 067
     Dates: start: 20090201, end: 20090401

REACTIONS (6)
  - HEADACHE [None]
  - HYPERCOAGULATION [None]
  - NECK PAIN [None]
  - PULMONARY EMBOLISM [None]
  - WEIGHT DECREASED [None]
  - MUSCULOSKELETAL PAIN [None]
